APPROVED DRUG PRODUCT: GRALISE
Active Ingredient: GABAPENTIN
Strength: 450MG
Dosage Form/Route: TABLET;ORAL
Application: N022544 | Product #003 | TE Code: AB
Applicant: ALMATICA PHARMA INC
Approved: Apr 18, 2023 | RLD: Yes | RS: No | Type: RX